FAERS Safety Report 6618746-3 (Version None)
Quarter: 2010Q1

REPORT INFORMATION
  Report Type: 
  Country: None (occurrence: None)
  Receive Date: 20100305
  Receipt Date: 20100305
  Transmission Date: 20100710
  Serious: No
  Sender: FDA-Public Use
  Company Number: None

PATIENT
  Sex: Female
  Weight: 62.5964 kg

DRUGS (1)
  1. REGLAN [Suspect]
     Indication: VOLVULUS
     Dosage: 5MG 4 X DAILY
     Dates: start: 20091218, end: 20100216

REACTIONS (6)
  - DIARRHOEA [None]
  - LACRIMATION INCREASED [None]
  - SKIN DISCOLOURATION [None]
  - SOMNOLENCE [None]
  - VISION BLURRED [None]
  - YAWNING [None]
